FAERS Safety Report 7253989-X (Version None)
Quarter: 2011Q1

REPORT INFORMATION
  Report Type: 
  Country: None (occurrence: None)
  Receive Date: 20110129
  Receipt Date: 20100324
  Transmission Date: 20110831
  Serious: Yes (Hospitalization, Other)
  Sender: FDA-Public Use
  Company Number: US-ABBOTT-10P-163-0629572-00

PATIENT
  Sex: Male
  Weight: 79.45 kg

DRUGS (12)
  1. TRAMADOL HCL [Concomitant]
     Indication: PAIN
  2. NAPROXEN SODIUM [Concomitant]
     Indication: PAIN
  3. ZOCOR [Concomitant]
     Indication: PRODUCT USED FOR UNKNOWN INDICATION
     Route: 048
  4. HUMIRA [Suspect]
     Route: 058
     Dates: end: 20090501
  5. METHOTREXATE [Concomitant]
     Dosage: SLOW TAPER STARTED
     Dates: start: 20091012
  6. TYLENOL PM [Concomitant]
     Indication: PAIN
     Dates: start: 20090601
  7. XANAX [Concomitant]
     Indication: PRODUCT USED FOR UNKNOWN INDICATION
  8. METHOTREXATE [Concomitant]
     Indication: RHEUMATOID ARTHRITIS
  9. VITAMIN B6 [Concomitant]
     Indication: PRODUCT USED FOR UNKNOWN INDICATION
  10. HUMIRA [Suspect]
     Indication: RHEUMATOID ARTHRITIS
     Route: 058
     Dates: start: 20060101, end: 20090201
  11. METHOTREXATE [Concomitant]
     Dosage: DOSE INCREASED
     Dates: start: 20090202, end: 20091012
  12. CALCIUM + VITAMIN D [Concomitant]
     Indication: OSTEOPENIA
     Dosage: 600MG/200MG

REACTIONS (19)
  - MUSCULOSKELETAL PAIN [None]
  - TUBERCULOSIS [None]
  - PAIN IN EXTREMITY [None]
  - SINUSITIS [None]
  - NASAL ULCER [None]
  - ROTATOR CUFF SYNDROME [None]
  - NASOPHARYNGITIS [None]
  - OSTEOPENIA [None]
  - NODAL OSTEOARTHRITIS [None]
  - SINUS OPERATION [None]
  - ARTHRALGIA [None]
  - SINUS CONGESTION [None]
  - BLOODY DISCHARGE [None]
  - COUGH [None]
  - PARANASAL SINUS HYPERSECRETION [None]
  - JOINT SWELLING [None]
  - MUSCULOSKELETAL STIFFNESS [None]
  - GRIP STRENGTH DECREASED [None]
  - OSTEOARTHRITIS [None]
